FAERS Safety Report 6921315-9 (Version None)
Quarter: 2010Q3

REPORT INFORMATION
  Report Type: 
  Country: None (occurrence: None)
  Receive Date: 20100812
  Receipt Date: 20100805
  Transmission Date: 20110219
  Serious: Yes (Other)
  Sender: FDA-Public Use
  Company Number: B0669505A

PATIENT
  Age: 15 Year
  Sex: Male
  Weight: 60 kg

DRUGS (4)
  1. ZOVIRAX [Suspect]
     Indication: HERPES ZOSTER
     Dosage: 7MGK PER DAY
     Route: 042
     Dates: start: 20100619, end: 20100621
  2. TACROLIMUS [Concomitant]
     Dosage: 8MG PER DAY
     Route: 048
  3. MYFORTIC [Concomitant]
     Dosage: 360MG PER DAY
     Route: 048
  4. DENVAR [Concomitant]
     Dosage: 200MG PER DAY
     Route: 048

REACTIONS (3)
  - ACCIDENTAL OVERDOSE [None]
  - LIP OEDEMA [None]
  - RENAL IMPAIRMENT [None]
